FAERS Safety Report 9276839 (Version 1)
Quarter: 2013Q2

REPORT INFORMATION
  Report Type: Spontaneous
  Country: US (occurrence: None)
  Receive Date: 20130501
  Receipt Date: 20130501
  Transmission Date: 20140414
  Serious: Yes (Hospitalization, Other)
  Sender: FDA-Public Use
  Company Number: 2013P1004938

PATIENT
  Age: 13 Year
  Sex: Male

DRUGS (10)
  1. CLINDAMYCIN [Suspect]
     Indication: SOFT TISSUE INFECTION
     Route: 042
  2. CLINDAMYCIN [Suspect]
     Indication: LOCALISED INFECTION
     Route: 042
  3. VANCOMYCIN [Suspect]
     Indication: SOFT TISSUE INFECTION
     Route: 042
  4. VANCOMYCIN [Suspect]
     Route: 042
  5. CEFEPIME [Suspect]
     Indication: SOFT TISSUE INFECTION
     Route: 042
  6. CEFEPIME [Suspect]
     Indication: LOCALISED INFECTION
     Route: 042
  7. GENTAMICIN [Suspect]
     Indication: SOFT TISSUE INFECTION
  8. GENTAMICIN [Suspect]
     Indication: LOCALISED INFECTION
  9. VANCOMYCIN [Suspect]
     Indication: SOFT TISSUE INFECTION
  10. VANCOMYCIN [Suspect]

REACTIONS (8)
  - Renal failure acute [None]
  - Tubulointerstitial nephritis [None]
  - Haemoglobin decreased [None]
  - Blood pressure increased [None]
  - Blood sodium decreased [None]
  - Blood chloride decreased [None]
  - Blastomycosis [None]
  - Haemodialysis [None]
